FAERS Safety Report 23829400 (Version 1)
Quarter: 2024Q2

REPORT INFORMATION
  Report Type: Spontaneous
  Country: PT (occurrence: PT)
  Receive Date: 20240508
  Receipt Date: 20240508
  Transmission Date: 20240716
  Serious: Yes (Other)
  Sender: FDA-Public Use
  Company Number: PT-AUROBINDO-AUR-APL-2024-017220

PATIENT
  Age: 30 Decade
  Sex: Female

DRUGS (6)
  1. MOMETASONE FUROATE [Suspect]
     Active Substance: MOMETASONE FUROATE
     Indication: Asthma
     Dosage: UNK
     Route: 045
  2. MOMETASONE FUROATE [Suspect]
     Active Substance: MOMETASONE FUROATE
     Indication: Rhinitis allergic
  3. FORMOTEROL [Suspect]
     Active Substance: FORMOTEROL
     Indication: Asthma
     Dosage: UNK
  4. FORMOTEROL [Suspect]
     Active Substance: FORMOTEROL
     Indication: Rhinitis allergic
  5. BUDESONIDE [Suspect]
     Active Substance: BUDESONIDE
     Indication: Rhinitis allergic
     Dosage: UNK
  6. BUDESONIDE [Suspect]
     Active Substance: BUDESONIDE
     Indication: Asthma

REACTIONS (2)
  - Abortion [Unknown]
  - Exposure during pregnancy [Unknown]
